FAERS Safety Report 10755247 (Version 1)
Quarter: 2015Q1

REPORT INFORMATION
  Report Type: Spontaneous
  Country: TR (occurrence: TR)
  Receive Date: 20150202
  Receipt Date: 20150202
  Transmission Date: 20150721
  Serious: Yes (Hospitalization)
  Sender: FDA-Public Use
  Company Number: TR-NOVOPROD-436594

PATIENT
  Sex: Male
  Weight: 1.28 kg

DRUGS (3)
  1. ALFAMET [Concomitant]
     Active Substance: METHYLDOPA
     Indication: HYPERTENSION
     Dosage: UNK
     Route: 064
     Dates: start: 201403, end: 20141007
  2. NOVORAPID [Suspect]
     Active Substance: INSULIN ASPART
     Indication: GESTATIONAL DIABETES
     Dosage: 12 U, QD
     Route: 064
     Dates: start: 20140912, end: 20141007
  3. DELIX                              /00885601/ [Concomitant]
     Indication: RENIN-ANGIOTENSIN SYSTEM INHIBITION
     Dosage: UNK
     Route: 064
     Dates: start: 201410

REACTIONS (4)
  - Caesarean section [None]
  - Atrial septal defect [Unknown]
  - Premature baby [Unknown]
  - Foetal exposure during pregnancy [Recovered/Resolved]

NARRATIVE: CASE EVENT DATE: 20140912
